FAERS Safety Report 14943587 (Version 2)
Quarter: 2018Q2

REPORT INFORMATION
  Report Type: Spontaneous
  Country: DK (occurrence: DK)
  Receive Date: 20180528
  Receipt Date: 20180620
  Transmission Date: 20180711
  Serious: Yes (Hospitalization, Other)
  Sender: FDA-Public Use
  Company Number: DK-009507513-1805DNK008662

PATIENT
  Age: 68 Year
  Sex: Female

DRUGS (4)
  1. CALCIUM (UNSPECIFIED) (+) VITAMIN D (UNSPECIFIED) [Concomitant]
     Active Substance: CALCIUM CARBONATE\VITAMIN D
     Dosage: UNK
     Dates: start: 201701
  2. KEYTRUDA [Suspect]
     Active Substance: PEMBROLIZUMAB
     Indication: LUNG NEOPLASM MALIGNANT
     Dosage: 200 MG, Q3W
     Dates: start: 20170522, end: 20180320
  3. LOPERAMID [Concomitant]
     Active Substance: LOPERAMIDE
     Dosage: 2 MG, UNK
     Dates: start: 201705
  4. SERTRALINE HYDROCHLORIDE. [Concomitant]
     Active Substance: SERTRALINE HYDROCHLORIDE
     Dosage: 50 MG, UNK
     Dates: start: 201703

REACTIONS (6)
  - Basal ganglia infarction [Recovering/Resolving]
  - Basal ganglia infarction [Recovering/Resolving]
  - Haemorrhagic transformation stroke [Recovering/Resolving]
  - Encephalitis autoimmune [Recovering/Resolving]
  - Cerebral infarction [Recovering/Resolving]
  - Gliosis [Recovering/Resolving]

NARRATIVE: CASE EVENT DATE: 20180204
